FAERS Safety Report 9705136 (Version 3)
Quarter: 2014Q3

REPORT INFORMATION
  Report Type: Spontaneous
  Country: US (occurrence: US)
  Receive Date: 20131122
  Receipt Date: 20140718
  Transmission Date: 20150326
  Serious: Yes (Life-Threatening, Hospitalization)
  Sender: FDA-Public Use
  Company Number: US-BAYER-2013-140293

PATIENT
  Age: 27 Year
  Sex: Female
  Weight: 73 kg

DRUGS (3)
  1. ALBUTEROL. [Concomitant]
     Active Substance: ALBUTEROL
     Indication: ASTHMA
     Dosage: UNK
     Dates: start: 1998
  2. MIRENA [Suspect]
     Active Substance: LEVONORGESTREL
     Indication: CONTRACEPTION
     Dosage: 20 MCG/24HR, CONT
     Route: 015
     Dates: start: 2001, end: 200307
  3. MIRENA [Suspect]
     Active Substance: LEVONORGESTREL
     Indication: CONTRACEPTION
     Dosage: 20 MCG/24HR, CONT
     Route: 015
     Dates: start: 200402, end: 200602

REACTIONS (18)
  - Injury [None]
  - Abdominal pain [None]
  - Pregnancy with contraceptive device [None]
  - Emotional distress [None]
  - Drug ineffective [None]
  - Medical device discomfort [None]
  - Hysterectomy [None]
  - Ovarian cyst [None]
  - Abdominal pain lower [None]
  - Anhedonia [None]
  - Vaginal erosion [None]
  - Anxiety [None]
  - Abdominal distension [None]
  - Device defective [None]
  - Swelling [None]
  - Depression [None]
  - General physical health deterioration [None]
  - Genital haemorrhage [None]

NARRATIVE: CASE EVENT DATE: 200701
